FAERS Safety Report 24983906 (Version 3)
Quarter: 2025Q1

REPORT INFORMATION
  Report Type: Spontaneous
  Country: JP (occurrence: JP)
  Receive Date: 20250219
  Receipt Date: 20250314
  Transmission Date: 20250408
  Serious: Yes (Hospitalization)
  Sender: NOVO NORDISK
  Company Number: JP-NOVOPROD-1369894

PATIENT
  Age: 41 Year
  Sex: Female
  Weight: 67.2 kg

DRUGS (1)
  1. FIASP [Suspect]
     Active Substance: INSULIN ASPART
     Indication: Type 1 diabetes mellitus
     Dosage: 17.1 IU, QD (0:00-2:00 0.85 U/HR, 2:00-7:00 0.65 U/HR, 7:00-12:00 0.80 U/HR, 12:00-23:00 0.70 U/HR,
     Route: 058
     Dates: start: 2021, end: 202409

REACTIONS (2)
  - Diabetic ketoacidosis [Recovered/Resolved]
  - Product gel formation [Unknown]

NARRATIVE: CASE EVENT DATE: 20240901
